FAERS Safety Report 9285672 (Version 1)
Quarter: 2013Q2

REPORT INFORMATION
  Report Type: Spontaneous
  Country: US (occurrence: None)
  Receive Date: 20130510
  Receipt Date: 20130510
  Transmission Date: 20140414
  Serious: Yes (Life-Threatening, Hospitalization)
  Sender: FDA-Public Use
  Company Number: None

PATIENT
  Age: 67 Year
  Sex: Female
  Weight: 50.8 kg

DRUGS (1)
  1. ATORVASTATIN CALCIUM [Suspect]
     Indication: BLOOD CHOLESTEROL INCREASED
     Route: 048
     Dates: start: 20130312, end: 20130325

REACTIONS (8)
  - Bradycardia [None]
  - Malaise [None]
  - Asthenia [None]
  - Dyspnoea [None]
  - Asthenia [None]
  - Insomnia [None]
  - Product substitution issue [None]
  - Product quality issue [None]
